FAERS Safety Report 11308696 (Version 2)
Quarter: 2015Q3

REPORT INFORMATION
  Report Type: Spontaneous
  Country: US (occurrence: US)
  Receive Date: 20150724
  Receipt Date: 20150727
  Transmission Date: 20151125
  Serious: No
  Sender: FDA-Public Use
  Company Number: US-PFIZER INC-2015238604

PATIENT
  Sex: Female

DRUGS (1)
  1. PREMARIN [Suspect]
     Active Substance: ESTROGENS, CONJUGATED
     Dosage: UNK

REACTIONS (6)
  - Drug administered at inappropriate site [Unknown]
  - Pelvic prolapse [Unknown]
  - Vulvovaginal burning sensation [Unknown]
  - Hypoaesthesia [Unknown]
  - Vulvovaginal pain [Unknown]
  - Sexual dysfunction [Unknown]
